FAERS Safety Report 20732069 (Version 1)
Quarter: 2022Q2

REPORT INFORMATION
  Report Type: Spontaneous
  Country: GR (occurrence: GR)
  Receive Date: 20220420
  Receipt Date: 20220420
  Transmission Date: 20220721
  Serious: Yes (Other)
  Sender: FDA-Public Use
  Company Number: None

PATIENT
  Age: 61 Year
  Sex: Female
  Weight: 75 kg

DRUGS (3)
  1. PAXLOVID [Suspect]
     Active Substance: NIRMATRELVIR\RITONAVIR
     Indication: COVID-19 treatment
     Dosage: UNK
     Route: 048
     Dates: start: 20220328, end: 20220329
  2. AMLOPEN [Concomitant]
     Indication: Hypertension
     Dosage: 5 MG, 1X/DAY
     Dates: start: 20210901, end: 20220329
  3. LOBIBETA [Concomitant]
     Indication: Hypertension
     Dosage: 5 MG, 1X/DAY
     Dates: start: 20210901, end: 20220329

REACTIONS (5)
  - Insomnia [Unknown]
  - Flatulence [Unknown]
  - Dysgeusia [Unknown]
  - Dysgeusia [Not Recovered/Not Resolved]
  - Headache [Not Recovered/Not Resolved]

NARRATIVE: CASE EVENT DATE: 20220329
